FAERS Safety Report 4318683-3 (Version None)
Quarter: 2004Q1

REPORT INFORMATION
  Report Type: 
  Country: None (occurrence: None)
  Receive Date: 20040318
  Receipt Date: 20040109
  Transmission Date: 20041129
  Serious: Yes (Congenital Anomaly, Other)
  Sender: FDA-Public Use
  Company Number: US-BRISTOL-MYERS SQUIBB COMPANY-12474623

PATIENT

DRUGS (2)
  1. REYATAZ [Suspect]
     Indication: HIV INFECTION
     Route: 064
     Dates: start: 20030724
  2. COMBIVIR [Concomitant]
     Dates: start: 20030724

REACTIONS (4)
  - FOETAL MALFORMATION [None]
  - GASTROINTESTINAL OEDEMA [None]
  - OLIGOHYDRAMNIOS [None]
  - PREGNANCY [None]
